FAERS Safety Report 5812760-3 (Version None)
Quarter: 2008Q3

REPORT INFORMATION
  Report Type: 
  Country: None (occurrence: None)
  Receive Date: 20080714
  Receipt Date: 20080627
  Transmission Date: 20090109
  Serious: Yes (Other)
  Sender: FDA-Public Use
  Company Number: 030405

PATIENT
  Sex: Female

DRUGS (8)
  1. AYGESTIN [Suspect]
     Dosage: ORAL
     Route: 048
     Dates: start: 19970101, end: 20010201
  2. ESTRADIOL [Suspect]
     Dosage: ORAL
     Route: 048
     Dates: start: 19970101, end: 20010201
  3. MEDROXYPROGESTERONE ACETATE [Suspect]
     Dosage: ORAL
     Route: 048
     Dates: start: 19970101, end: 20010201
  4. PREFEST [Suspect]
     Dosage: ORAL
     Route: 048
     Dates: start: 19970101, end: 20010201
  5. PREMARIN [Suspect]
     Dosage: ORAL
     Route: 048
     Dates: start: 19970101, end: 20010201
  6. PREMPHASE (PREMARIN;CYCRIN 14/14) [Suspect]
     Dosage: ORAL
     Route: 048
     Dates: start: 19970101, end: 20010201
  7. PREMPRO [Suspect]
     Dosage: ORAL
     Route: 048
     Dates: start: 19970101, end: 20010201
  8. PROVERA [Suspect]
     Dosage: ORAL
     Route: 048
     Dates: start: 19970101, end: 20010201

REACTIONS (1)
  - BREAST CANCER FEMALE [None]
